FAERS Safety Report 5782134-2 (Version None)
Quarter: 2008Q2

REPORT INFORMATION
  Report Type: 
  Country: None (occurrence: None)
  Receive Date: 20080623
  Receipt Date: 20080616
  Transmission Date: 20081010
  Serious: Yes (Life-Threatening, Hospitalization)
  Sender: FDA-Public Use
  Company Number: PL-ABBOTT-08P-129-0454950-00

PATIENT
  Age: 32 Year
  Sex: Female

DRUGS (2)
  1. HUMIRA [Suspect]
     Indication: CROHN'S DISEASE
  2. HUMIRA [Suspect]
     Indication: FISTULA

REACTIONS (4)
  - ERYTHEMA NODOSUM [None]
  - JOINT SWELLING [None]
  - PYREXIA [None]
  - STREPTOCOCCAL SEPSIS [None]
